FAERS Safety Report 5405810-X (Version None)
Quarter: 2007Q3

REPORT INFORMATION
  Report Type: 
  Country: None (occurrence: None)
  Receive Date: 20070802
  Receipt Date: 20070726
  Transmission Date: 20080115
  Serious: Yes (Death, Hospitalization)
  Sender: FDA-Public Use
  Company Number: 000#5#2005-00092

PATIENT
  Age: 74 Year
  Sex: Male
  Weight: 73.0291 kg

DRUGS (29)
  1. ROTIGOTINE (DOSE UNKNOWN), PATCH (SILICONE) (ROTIGOTINE) [Suspect]
     Dosage: TRANSDERMAL
     Route: 062
     Dates: start: 20030425, end: 20070523
  2. ROTIGOTINE-TRIAL [Concomitant]
  3. MINOCYCLINE HCL [Concomitant]
  4. SULFAMETHOXAZOLE AND TRIMETHOPRIM [Concomitant]
  5. TERAZOSIN HCL [Concomitant]
  6. HYDROCHLOLROTHIAZIDE [Concomitant]
  7. OXYBUTYNIN CHLORIDE [Concomitant]
  8. BACLOFEN [Concomitant]
  9. LEVODOPA, CARBIDOPA, ENTACAPONE [Concomitant]
  10. AMANTADINE HCL [Concomitant]
  11. PANTOPRAZOLE SODIUM [Concomitant]
  12. SILDENAFIL CITRATE [Concomitant]
  13. CLOPIDOGREL BISULFATE [Concomitant]
  14. ACETYLSALICYLIC ACID SRT [Concomitant]
  15. FENOFIBRATE [Concomitant]
  16. ALLOPURINOL [Concomitant]
  17. ATORVASTATIN CALCIUM [Concomitant]
  18. GLYCEROL 2.6% [Concomitant]
  19. OMEPRAZOLE [Concomitant]
  20. PSYLLIUM HYDROPHILIC MUCILLOID [Concomitant]
  21. FLUTICASONE PROPIONATE [Concomitant]
  22. AMOXICILLIN + CLAVULANATE POTASSIUM [Concomitant]
  23. CARBIDOPA AND LEVODOPA [Concomitant]
  24. FINASTERIDE [Concomitant]
  25. IBUPROFEN TABLETS [Concomitant]
  26. DOCUSATE SODIUM, CASANTHRANOL [Concomitant]
  27. DUTASTERIDE [Concomitant]
  28. FLUROCORTISONE [Concomitant]
  29. RASAGILINE MESYLATE [Concomitant]

REACTIONS (8)
  - CEREBRAL INFARCTION [None]
  - CEREBROVASCULAR ACCIDENT [None]
  - CIRCULATORY COLLAPSE [None]
  - GASTROINTESTINAL DISORDER [None]
  - IMPAIRED GASTRIC EMPTYING [None]
  - INTERVERTEBRAL DISC DEGENERATION [None]
  - INTERVERTEBRAL DISC PROTRUSION [None]
  - PNEUMONIA ASPIRATION [None]
